FAERS Safety Report 23915320 (Version 1)
Quarter: 2024Q2

REPORT INFORMATION
  Report Type: Report from Study
  Country: US (occurrence: US)
  Receive Date: 20240529
  Receipt Date: 20240529
  Transmission Date: 20240715
  Serious: Yes (Other)
  Sender: FDA-Public Use
  Company Number: US-ABBVIE-5773751

PATIENT
  Sex: Female

DRUGS (1)
  1. SKYRIZI [Suspect]
     Active Substance: RISANKIZUMAB-RZAA
     Indication: Crohn^s disease
     Route: 058
     Dates: start: 20230510

REACTIONS (5)
  - Cardiac disorder [Recovering/Resolving]
  - Anaemia [Recovering/Resolving]
  - Gastrointestinal disorder [Not Recovered/Not Resolved]
  - Flatulence [Unknown]
  - Gastrointestinal sounds abnormal [Unknown]
